FAERS Safety Report 14904507 (Version 1)
Quarter: 2018Q2

REPORT INFORMATION
  Report Type: Spontaneous
  Country: US (occurrence: US)
  Receive Date: 20180517
  Receipt Date: 20180517
  Transmission Date: 20180711
  Serious: No
  Sender: FDA-Public Use
  Company Number: US-SA-2017SA154085

PATIENT
  Age: 66 Year
  Sex: Female

DRUGS (2)
  1. LANTUS SOLOSTAR [Suspect]
     Active Substance: INSULIN GLARGINE
     Dosage: DOSE:16 UNIT(S)
     Route: 051
     Dates: start: 2001
  2. SOLOSTAR [Suspect]
     Active Substance: DEVICE
     Dates: start: 2001

REACTIONS (2)
  - Pruritus [Unknown]
  - Hunger [Unknown]

NARRATIVE: CASE EVENT DATE: 201702
